FAERS Safety Report 20430038 (Version 1)
Quarter: 2022Q1

REPORT INFORMATION
  Report Type: Report from Study
  Country: FR (occurrence: FR)
  Receive Date: 20220204
  Receipt Date: 20220204
  Transmission Date: 20220424
  Serious: Yes (Other)
  Sender: FDA-Public Use
  Company Number: FR-SERVIER-S19005588

PATIENT

DRUGS (8)
  1. ONCASPAR [Suspect]
     Active Substance: PEGASPARGASE
     Indication: Acute lymphocytic leukaemia
     Dosage: 2025 IU, ON DAYS 15 AND 43
     Route: 042
     Dates: start: 20190218, end: 20190321
  2. TN UNSPECIFIED [Concomitant]
     Indication: Acute lymphocytic leukaemia
     Dosage: 49 MG, ON DAYS 1-14 AND 29-42
     Route: 048
     Dates: start: 20190204, end: 20190320
  3. TN UNSPECIFIED [Concomitant]
     Indication: Acute lymphocytic leukaemia
     Dosage: 60 MG, ON DAYS 3-6, 10-13 AND 31-34
     Route: 042
     Dates: start: 20190206, end: 20190319
  4. TN UNSPECIFIED [Concomitant]
     Dosage: 30 MG, ON DAYS 3 AND 31
     Route: 037
     Dates: start: 20190206, end: 20190309
  5. TN UNSPECIFIED [Concomitant]
     Indication: Acute lymphocytic leukaemia
     Dosage: 32 MG, ON DAYS 3 AND 31
     Route: 037
     Dates: start: 20190206, end: 20190309
  6. TN UNSPECIFIED [Concomitant]
     Indication: Acute lymphocytic leukaemia
     Dosage: 15 MG, ON DAYS 3 AND 31
     Route: 037
     Dates: start: 20190206, end: 20190309
  7. TN UNSPECIFIED [Concomitant]
     Indication: Acute lymphocytic leukaemia
     Dosage: 1.2 MG, ON DAYS 15, 22, 43 AND 50
     Route: 042
     Dates: start: 20190218, end: 20190328
  8. TN UNSPECIFIED [Concomitant]
     Indication: Acute lymphocytic leukaemia
     Dosage: 820 MG, ON DAYS 1 AND 29
     Route: 042
     Dates: start: 20190204

REACTIONS (2)
  - Hypertriglyceridaemia [Recovered/Resolved]
  - Hyperlipidaemia [Recovered/Resolved]

NARRATIVE: CASE EVENT DATE: 20190228
